FAERS Safety Report 9089322 (Version 2)
Quarter: 2013Q1

REPORT INFORMATION
  Report Type: Spontaneous
  Country: CH (occurrence: CH)
  Receive Date: 20130131
  Receipt Date: 20130228
  Transmission Date: 20140127
  Serious: Yes (Hospitalization, Other)
  Sender: FDA-Public Use
  Company Number: PHHY2013CH007616

PATIENT
  Age: 44 Year
  Sex: Male

DRUGS (3)
  1. AMOXICILLIN\CLAVULANATE POTASSIUM [Suspect]
     Indication: INFLAMMATION
     Dates: start: 20120519
  2. BEER [Suspect]
     Dosage: 4 U, 1 IN THE EVENING AND 3 THROUGHOUT THE NIGHT
  3. PANTOPROZON [Concomitant]

REACTIONS (5)
  - Road traffic accident [Unknown]
  - Contusion [Unknown]
  - Skull fracture [Unknown]
  - Cerebral haemorrhage [Unknown]
  - Circulatory collapse [Unknown]
